FAERS Safety Report 6704027-6 (Version None)
Quarter: 2010Q2

REPORT INFORMATION
  Report Type: 
  Country: None (occurrence: None)
  Receive Date: 20100430
  Receipt Date: 20100426
  Transmission Date: 20101027
  Serious: No
  Sender: FDA-Public Use
  Company Number: US-B.I. PHARMACEUTICALS,INC./RIDGEFIELD-2010-BP-04849BP

PATIENT
  Age: 61 Year
  Sex: Male

DRUGS (4)
  1. ZANTAC 150 [Suspect]
     Indication: DYSPEPSIA
     Dosage: 300 MG
     Route: 048
     Dates: start: 20100401
  2. LIPITOR [Concomitant]
     Indication: CARDIAC DISORDER
  3. AVAPRO [Concomitant]
     Indication: HYPERTENSION
  4. AVAPRO [Concomitant]

REACTIONS (1)
  - DRUG INEFFECTIVE [None]
